FAERS Safety Report 6243151-1 (Version None)
Quarter: 2009Q2

REPORT INFORMATION
  Report Type: 
  Country: None (occurrence: None)
  Receive Date: 20090622
  Receipt Date: 20090622
  Transmission Date: 20091009
  Serious: No
  Sender: FDA-Public Use
  Company Number: None

PATIENT
  Sex: Female

DRUGS (2)
  1. ZICAM COLD REMEDY -GEL SWAB- ZINCUM GLUCONICUM 2X MATRIXX [Suspect]
     Indication: NASOPHARYNGITIS
     Dosage: 1 SWAB NASAL  (DURATION: MAYBE TEN TIMES)
     Route: 045
     Dates: start: 20071112, end: 20071130
  2. ZICAM COLD REMEDY -GEL SWAB- ZINCUM GLUCONICUM 2X MATRIXX [Suspect]
     Indication: PROPHYLAXIS
     Dosage: 1 SWAB NASAL  (DURATION: MAYBE TEN TIMES)
     Route: 045
     Dates: start: 20071112, end: 20071130

REACTIONS (9)
  - ANOSMIA [None]
  - CONDITION AGGRAVATED [None]
  - DYSGEUSIA [None]
  - MULTIPLE INJURIES [None]
  - NASAL CONGESTION [None]
  - NASOPHARYNGITIS [None]
  - NAUSEA [None]
  - PAROSMIA [None]
  - QUALITY OF LIFE DECREASED [None]
